FAERS Safety Report 5079755-1 (Version None)
Quarter: 2006Q3

REPORT INFORMATION
  Report Type: 
  Country: None (occurrence: None)
  Receive Date: 20060815
  Receipt Date: 20051224
  Transmission Date: 20061208
  Serious: No
  Sender: FDA-Public Use
  Company Number: US-GLAXOSMITHKLINE-A0586942A

PATIENT
  Sex: Male

DRUGS (1)
  1. TAGAMET HB 200 [Suspect]

REACTIONS (5)
  - CHEST DISCOMFORT [None]
  - CHILLS [None]
  - DYSPNOEA [None]
  - MUSCLE SPASMS [None]
  - VOMITING [None]
